FAERS Safety Report 25984167 (Version 2)
Quarter: 2025Q4

REPORT INFORMATION
  Report Type: Spontaneous
  Country: BR (occurrence: BR)
  Receive Date: 20251031
  Receipt Date: 20251110
  Transmission Date: 20260117
  Serious: Yes (Other)
  Sender: FERRING
  Company Number: BR-FERRINGPH-2025FE06363

PATIENT

DRUGS (4)
  1. PICOPREP [Suspect]
     Active Substance: ANHYDROUS CITRIC ACID\MAGNESIUM OXIDE\SODIUM PICOSULFATE
     Indication: Bowel preparation
     Dosage: 1ST SACHET AT 4 P.M. 2ND SACHET AT 9 P.M.
     Route: 048
     Dates: start: 20251026, end: 20251026
  2. LEVOTHYROXINE [Concomitant]
     Active Substance: LEVOTHYROXINE
     Indication: Hypothyroidism
     Dosage: 100 UG, 1 TIME DAILY (IN THE MORNING ON AN EMPTY STOMACH
     Route: 048
     Dates: start: 20251026
  3. Dulcolax [Concomitant]
     Dosage: 2 DOSAGE FORM
     Route: 048
     Dates: start: 20251026
  4. Fly [Concomitant]
     Dosage: 2 DOSAGE FORM
     Route: 048
     Dates: start: 20251026

REACTIONS (12)
  - Limb injury [Recovered/Resolved]
  - Loss of consciousness [Recovered/Resolved]
  - Syncope [Recovered/Resolved]
  - Skin burning sensation [Recovered/Resolved]
  - Asthenia [Recovered/Resolved]
  - Pallor [Recovered/Resolved]
  - Hyperhidrosis [Recovered/Resolved]
  - Hypotension [Recovered/Resolved]
  - Hyperthermia [Recovered/Resolved]
  - Confusional state [Recovered/Resolved]
  - Abdominal pain [Recovered/Resolved]
  - Treatment noncompliance [Recovered/Resolved]

NARRATIVE: CASE EVENT DATE: 20251027
